FAERS Safety Report 6087089-1 (Version None)
Quarter: 2009Q1

REPORT INFORMATION
  Report Type: 
  Country: None (occurrence: None)
  Receive Date: 20090223
  Receipt Date: 20081225
  Transmission Date: 20090719
  Serious: Yes (Death)
  Sender: FDA-Public Use
  Company Number: IN-PFIZER INC-2008161153

PATIENT

DRUGS (5)
  1. SILDENAFIL CITRATE [Suspect]
     Indication: PULMONARY ARTERIAL HYPERTENSION
     Dosage: 40 MG, 3X/DAY
     Route: 048
     Dates: start: 20070709
  2. FRUSEMIDE [Concomitant]
     Dates: start: 20070305
  3. ACENOCOUMAROL [Concomitant]
     Dates: start: 20080821
  4. DIGOXIN [Concomitant]
     Dates: start: 20060325
  5. SPIRONOLACTONE [Concomitant]
     Dates: start: 20080821

REACTIONS (1)
  - CARDIAC FAILURE [None]
